FAERS Safety Report 18665870 (Version 1)
Quarter: 2020Q4

REPORT INFORMATION
  Report Type: Spontaneous
  Country: GB (occurrence: GB)
  Receive Date: 20201226
  Receipt Date: 20201226
  Transmission Date: 20210114
  Serious: Yes (Other)
  Sender: FDA-Public Use
  Company Number: GB-TEVA-2020-GB-1860957

PATIENT
  Age: 59 Year
  Sex: Female
  Weight: 90 kg

DRUGS (21)
  1. NAPROXEN. [Suspect]
     Active Substance: NAPROXEN
     Dosage: AFTER FOOD
     Dates: start: 20200914
  2. ETORICOXIB. [Concomitant]
     Active Substance: ETORICOXIB
     Dates: start: 20200928, end: 20201125
  3. MOMETASONE [Concomitant]
     Active Substance: MOMETASONE
     Dosage: TWO SPRAYS ONCE OR TWICE DAILY
     Dates: start: 20160112
  4. ATORVASTATIN [Concomitant]
     Active Substance: ATORVASTATIN
     Dates: start: 20160112
  5. VOLTAROL [Concomitant]
     Active Substance: DICLOFENAC SODIUM
     Dosage: APPLY
     Dates: start: 20160817
  6. ADCAL [Concomitant]
     Dates: start: 20160224
  7. FELODIPINE. [Concomitant]
     Active Substance: FELODIPINE
     Dates: start: 20170425
  8. DERMOL [Concomitant]
     Active Substance: BENZALKONIUM CHLORIDE\CHLORHEXIDINE HYDROCHLORIDE\ISOPROPYL MYRISTATE\PARAFFIN
     Dosage: USE AS A SOAP SUBSTITUTE OR AS A LEAVE-ON APPLI...
     Dates: start: 20200204
  9. OMEPRAZOLE. [Concomitant]
     Active Substance: OMEPRAZOLE
     Dosage: ONE IN THE MORNING AND TWO IN THE EVENING
     Dates: start: 20170818
  10. OXYPRO PROLONGED RELEASE [Concomitant]
     Dates: start: 20200110
  11. FLUTICASONE PROPIONATE. [Concomitant]
     Active Substance: FLUTICASONE PROPIONATE
     Route: 055
     Dates: start: 20160112
  12. MEBEVERINE HYDROCHLORIDE [Concomitant]
     Active Substance: MEBEVERINE HYDROCHLORIDE
     Dosage: PREFERABLY 20 MINUTES BEF...
     Dates: start: 20160112
  13. OPTILAST [Concomitant]
     Dates: start: 20160112
  14. LOTRIDERM [Concomitant]
     Active Substance: BETAMETHASONE DIPROPIONATE\CLOTRIMAZOLE
     Dosage: APPLY
     Dates: start: 20200204
  15. ESTRADIOL. [Concomitant]
     Active Substance: ESTRADIOL
     Dosage: EVERY NIGHT FOR 2 WEEKS, THEN USE TWO N...
     Dates: start: 20180828
  16. MONTELUKAST [Concomitant]
     Active Substance: MONTELUKAST SODIUM
     Dosage: 1 DOSAGE FORMS DAILY; AT NIGHT
     Dates: start: 20160112
  17. CETIRIZINE [Concomitant]
     Active Substance: CETIRIZINE HYDROCHLORIDE
     Dates: start: 20160112
  18. MACROGOL [Concomitant]
     Active Substance: POLYETHYLENE GLYCOLS
     Dosage: 1-2 SACHETS DAILY
     Dates: start: 20181023
  19. TERBUTALINE [Concomitant]
     Active Substance: TERBUTALINE
     Route: 055
     Dates: start: 20160112
  20. AMITRIPTYLINE HYDROCHLORIDE. [Concomitant]
     Active Substance: AMITRIPTYLINE HYDROCHLORIDE
     Dosage: TAKE BETWEEN 1 AND 3 AT NIGHT
     Dates: start: 20181004
  21. TRAMADOL. [Concomitant]
     Active Substance: TRAMADOL
     Dosage: TAKE 1-2 TABLETS 2-3 TIMES A WEEK WHEN REQUIRED
     Dates: start: 20190812

REACTIONS (2)
  - Nausea [Unknown]
  - Mouth ulceration [Recovering/Resolving]

NARRATIVE: CASE EVENT DATE: 20201125
